FAERS Safety Report 17349134 (Version 6)
Quarter: 2020Q4

REPORT INFORMATION
  Report Type: Report from Study
  Country: HK (occurrence: HK)
  Receive Date: 20200130
  Receipt Date: 20201124
  Transmission Date: 20210113
  Serious: Yes (Hospitalization)
  Sender: FDA-Public Use
  Company Number: NVSC2019HK013874

PATIENT
  Age: 72 Year
  Sex: Male
  Weight: 63.2 kg

DRUGS (40)
  1. PARACETAMOL [Concomitant]
     Active Substance: ACETAMINOPHEN
     Indication: CHEST PAIN
     Dosage: UNK
     Route: 065
     Dates: start: 20190920, end: 20191111
  2. TERBUTALINE SULPHATE [Concomitant]
     Active Substance: TERBUTALINE SULFATE
     Dosage: UNK
     Route: 065
     Dates: start: 20191014, end: 20191022
  3. BENADRYL [Concomitant]
     Active Substance: DIPHENHYDRAMINE HYDROCHLORIDE
     Indication: PREMEDICATION
     Dosage: UNK
     Route: 065
     Dates: start: 20191004, end: 20191004
  4. BISACODYL. [Concomitant]
     Active Substance: BISACODYL
     Dosage: UNK
     Route: 065
     Dates: start: 20191014, end: 20191015
  5. HEPARINOID [Concomitant]
     Active Substance: CHONDROITIN SULFATE (BOVINE)
     Indication: PROPHYLAXIS
     Dosage: UNK
     Route: 065
     Dates: start: 20191014, end: 20200429
  6. MORPHINE SULPHATE [Concomitant]
     Active Substance: MORPHINE SULFATE
     Indication: DYSPNOEA
     Dosage: UNK
     Route: 065
     Dates: start: 20191001, end: 20191010
  7. MAXOLON [Concomitant]
     Active Substance: METOCLOPRAMIDE HYDROCHLORIDE
     Indication: PREMEDICATION
     Dosage: UNK
     Route: 065
     Dates: start: 20191004, end: 20191004
  8. PHOLCODINE [Concomitant]
     Active Substance: PHOLCODINE
     Indication: COUGH
     Dosage: UNK
     Route: 065
     Dates: start: 20190823, end: 20191001
  9. COMPARATOR CARBOPLATIN [Suspect]
     Active Substance: CARBOPLATIN
     Dosage: UNK
     Route: 042
  10. COMPARATOR PACLITAXEL [Suspect]
     Active Substance: PACLITAXEL
     Indication: NON-SMALL CELL LUNG CANCER
     Dosage: 330 MG, Q3W
     Route: 042
     Dates: start: 20191004, end: 20191004
  11. COMPARATOR PEMBROLIZUMAB [Suspect]
     Active Substance: PEMBROLIZUMAB
     Indication: NON-SMALL CELL LUNG CANCER
     Dosage: 200 MG, Q3W
     Route: 042
     Dates: start: 20191004
  12. LORAZEPAM. [Concomitant]
     Active Substance: LORAZEPAM
     Indication: DYSPNOEA
     Dosage: UNK
     Route: 065
     Dates: start: 20190922, end: 20191002
  13. SIMVASTATIN. [Concomitant]
     Active Substance: SIMVASTATIN
     Indication: HYPERLIPIDAEMIA
     Dosage: UNK
     Route: 065
     Dates: start: 20140809
  14. DEXAMETHASONE. [Concomitant]
     Active Substance: DEXAMETHASONE
     Indication: PREMEDICATION
     Dosage: UNK
     Route: 065
     Dates: start: 20191003, end: 20191004
  15. DEXAMETHASONE. [Concomitant]
     Active Substance: DEXAMETHASONE
     Dosage: UNK
     Route: 065
     Dates: start: 20191004, end: 20191004
  16. PEPCIDINE [Concomitant]
     Active Substance: FAMOTIDINE
     Indication: PREMEDICATION
     Dosage: UNK
     Route: 065
     Dates: start: 20191003, end: 20191004
  17. BISACODYL. [Concomitant]
     Active Substance: BISACODYL
     Indication: CONSTIPATION
     Dosage: UNK
     Route: 065
     Dates: start: 20191007, end: 20191010
  18. IPRATROPIUM BROMIDE. [Concomitant]
     Active Substance: IPRATROPIUM BROMIDE
     Indication: DYSPNOEA
     Dosage: UNK
     Route: 065
     Dates: start: 20190821
  19. ACETYLCYSTEINE. [Concomitant]
     Active Substance: ACETYLCYSTEINE
     Indication: PRODUCTIVE COUGH
     Dosage: UNK
     Route: 065
     Dates: start: 20190821
  20. VANNAIR [Concomitant]
     Active Substance: BUDESONIDE\FORMOTEROL FUMARATE DIHYDRATE
     Indication: DYSPNOEA
     Dosage: UNK
     Route: 065
     Dates: start: 20190823, end: 20190924
  21. COMPARATOR CARBOPLATIN [Suspect]
     Active Substance: CARBOPLATIN
     Indication: NON-SMALL CELL LUNG CANCER
     Dosage: 560 MG, Q3W
     Route: 042
     Dates: start: 20191004, end: 20191004
  22. COMPARATOR PACLITAXEL [Suspect]
     Active Substance: PACLITAXEL
     Dosage: UNK
     Route: 042
  23. CANAKINUMAB. [Suspect]
     Active Substance: CANAKINUMAB
     Indication: NON-SMALL CELL LUNG CANCER
     Dosage: UNK
     Route: 058
     Dates: start: 20191004
  24. METOPROLOL TARTRATE. [Concomitant]
     Active Substance: METOPROLOL TARTRATE
     Indication: HYPERTENSION
     Dosage: UNK
     Route: 065
     Dates: start: 20040518, end: 20200301
  25. TRAMADOL. [Concomitant]
     Active Substance: TRAMADOL
     Indication: CHEST PAIN
     Dosage: UNK
     Route: 065
     Dates: start: 20190920, end: 20191001
  26. METOCLOPRAMIDE. [Concomitant]
     Active Substance: METOCLOPRAMIDE
     Indication: PROPHYLAXIS
     Dosage: UNK
     Route: 065
     Dates: start: 20190920, end: 20191025
  27. BROMHEXINE [Concomitant]
     Active Substance: BROMHEXINE
     Indication: SPUTUM ABNORMAL
     Dosage: UNK
     Route: 065
     Dates: start: 20190922, end: 20200102
  28. AKYNZEO [Concomitant]
     Active Substance: NETUPITANT\PALONOSETRON HYDROCHLORIDE
     Indication: PROPHYLAXIS
     Dosage: UNK
     Route: 065
     Dates: start: 20191004, end: 20191004
  29. AMLODIPINE [Concomitant]
     Active Substance: AMLODIPINE BESYLATE
     Indication: HYPERTENSION
     Dosage: UNK
     Route: 065
     Dates: start: 20180707
  30. DOCUSATE SODIUM. [Concomitant]
     Active Substance: DOCUSATE SODIUM
     Indication: CONSTIPATION
     Dosage: UNK
     Route: 065
     Dates: start: 20191007, end: 20191117
  31. CHLORPHENIRAMINE MALEATE. [Concomitant]
     Active Substance: CHLORPHENIRAMINE MALEATE
     Indication: RHINITIS ALLERGIC
     Dosage: UNK
     Route: 065
     Dates: start: 20190823, end: 20200108
  32. POTASSIUM CHLORIDE. [Concomitant]
     Active Substance: POTASSIUM CHLORIDE
     Indication: HYPOKALAEMIA
     Dosage: UNK
     Route: 065
     Dates: start: 20191001, end: 20191001
  33. LACTULOSE. [Concomitant]
     Active Substance: LACTULOSE
     Indication: PROPHYLAXIS
     Dosage: UNK
     Route: 065
     Dates: start: 20191001, end: 20200122
  34. SENNA [Concomitant]
     Active Substance: SENNA LEAF\SENNOSIDES\SENNOSIDES A AND B
     Indication: CONSTIPATION
     Dosage: UNK
     Route: 065
     Dates: start: 20191014
  35. DIPHENHYDRAMINE COMPOUND LINCTUS [Concomitant]
     Indication: COUGH
     Dosage: UNK
     Route: 065
     Dates: start: 20191007, end: 20191011
  36. SALBUTAMOL [Concomitant]
     Active Substance: ALBUTEROL
     Indication: DYSPNOEA
     Dosage: UNK
     Route: 065
     Dates: start: 20190821
  37. TERBUTALINE SULPHATE [Concomitant]
     Active Substance: TERBUTALINE SULFATE
     Indication: DYSPNOEA
     Dosage: UNK
     Route: 065
     Dates: start: 20191001, end: 20191010
  38. ACTIFED [Concomitant]
     Indication: COUGH
     Dosage: UNK
     Route: 065
     Dates: start: 20191001, end: 20191024
  39. LACTULOSE. [Concomitant]
     Active Substance: LACTULOSE
     Indication: CONSTIPATION
  40. BETAHISTINE MESILATE [Concomitant]
     Active Substance: BETAHISTINE MESILATE
     Indication: PROPHYLAXIS
     Dosage: UNK
     Route: 065
     Dates: start: 20191005, end: 20191117

REACTIONS (1)
  - Neutropenia [Recovered/Resolved]

NARRATIVE: CASE EVENT DATE: 20191015
